FAERS Safety Report 9223865 (Version 1)
Quarter: 2013Q2

REPORT INFORMATION
  Report Type: Spontaneous
  Country: US (occurrence: US)
  Receive Date: 20130411
  Receipt Date: 20130411
  Transmission Date: 20140414
  Serious: Yes (Other)
  Sender: FDA-Public Use
  Company Number: US-AMGEN-USASP2013024318

PATIENT
  Age: 35 Year
  Sex: Male

DRUGS (1)
  1. ENBREL [Suspect]
     Indication: PSORIASIS
     Dosage: UNK
     Dates: start: 201211

REACTIONS (5)
  - Neurological symptom [Unknown]
  - Memory impairment [Unknown]
  - Anosmia [Unknown]
  - Feeling abnormal [Unknown]
  - Pain [Unknown]
